FAERS Safety Report 11717126 (Version 2)
Quarter: 2020Q3

REPORT INFORMATION
  Report Type: Report from Study
  Country: CN (occurrence: CN)
  Receive Date: 20151109
  Receipt Date: 20200925
  Transmission Date: 20201102
  Serious: Yes (Other)
  Sender: FDA-Public Use
  Company Number: CN-ELI_LILLY_AND_COMPANY-CN201510009846

PATIENT
  Sex: Male
  Weight: 56 kg

DRUGS (4)
  1. ZYPREXA [Suspect]
     Active Substance: OLANZAPINE
     Indication: MENTAL DISORDER
     Dosage: 5 MG, DAILY
     Route: 048
     Dates: start: 20150526, end: 20150602
  2. GABAPENTIN. [Suspect]
     Active Substance: GABAPENTIN
     Indication: HERPES ZOSTER
     Dosage: 0.3 G, TID
     Route: 048
     Dates: start: 20150529, end: 20150531
  3. PENICILLIN                         /00000901/ [Suspect]
     Active Substance: PENICILLIN G
     Indication: NEUROSYPHILIS
     Dosage: 4000000 U, EVERY 4 HRS
     Route: 050
     Dates: start: 20150528, end: 20150529
  4. ACYCLOVIR                          /00587301/ [Suspect]
     Active Substance: ACYCLOVIR
     Indication: HERPES ZOSTER
     Dosage: 0.5 G, TID
     Route: 050
     Dates: start: 20150526, end: 20150531

REACTIONS (7)
  - Pruritus [Recovering/Resolving]
  - Acute generalised exanthematous pustulosis [Recovering/Resolving]
  - Rash [Recovering/Resolving]
  - Skin erosion [Recovering/Resolving]
  - Erythema [Recovering/Resolving]
  - Pustule [Recovering/Resolving]
  - Dermatitis allergic [Recovering/Resolving]
